FAERS Safety Report 9478949 (Version 3)
Quarter: 2013Q4

REPORT INFORMATION
  Report Type: Spontaneous
  Country: JP (occurrence: JP)
  Receive Date: 20130827
  Receipt Date: 20131016
  Transmission Date: 20140711
  Serious: Yes (Hospitalization, Other)
  Sender: FDA-Public Use
  Company Number: JP-B.I. PHARMACEUTICALS,INC./RIDGEFIELD-2013-BI-26352NB

PATIENT
  Age: 92 Year
  Sex: Female
  Weight: 44 kg

DRUGS (9)
  1. TRAZENTA [Suspect]
     Indication: TYPE 2 DIABETES MELLITUS
     Dosage: 5 MG
     Route: 048
     Dates: start: 20130717, end: 20130806
  2. FLOMOX [Suspect]
     Indication: URINARY TRACT INFECTION
     Dosage: 300 MG
     Route: 048
     Dates: start: 20130722, end: 20130726
  3. FLOMOX [Suspect]
     Indication: PYELONEPHRITIS ACUTE
  4. LASIX / FUROSEMIDE [Concomitant]
     Indication: PLEURAL EFFUSION
     Dosage: 20 MG
     Route: 048
     Dates: start: 20130717, end: 20130819
  5. AMARYL / GLIMEPIRIDE [Concomitant]
     Indication: TYPE 2 DIABETES MELLITUS
     Dosage: 1 MG
     Route: 048
     Dates: start: 20130717, end: 20130819
  6. PARIET / SODIUM RABEPRAZOLE [Concomitant]
     Dosage: 10 MG
     Route: 048
     Dates: start: 20130717, end: 20130819
  7. ROCEPHIN [Concomitant]
     Indication: URINARY TRACT INFECTION
     Dosage: 1 G
     Route: 042
     Dates: start: 20130726, end: 20130802
  8. ACTOS / PIOGLITAZONE HYDROCHLORIDE [Concomitant]
     Indication: DIABETES MELLITUS
     Route: 048
  9. GLACTIV [Concomitant]

REACTIONS (4)
  - Hepatic function abnormal [Recovered/Resolved]
  - Pyelonephritis acute [Recovered/Resolved]
  - Bile duct stone [Not Recovered/Not Resolved]
  - Biliary dilatation [Not Recovered/Not Resolved]
